FAERS Safety Report 7154384-4 (Version None)
Quarter: 2010Q4

REPORT INFORMATION
  Report Type: 
  Country: None (occurrence: None)
  Receive Date: 20101213
  Receipt Date: 20101130
  Transmission Date: 20110411
  Serious: Yes (Life-Threatening, Other)
  Sender: FDA-Public Use
  Company Number: FR-ELI_LILLY_AND_COMPANY-FR201011007592

PATIENT
  Sex: Male

DRUGS (5)
  1. ZYPREXA [Suspect]
     Indication: BIPOLAR DISORDER
     Dosage: 10 MG, DAILY (1/D)
     Route: 048
     Dates: end: 20100919
  2. TEMESTA [Concomitant]
     Indication: BIPOLAR DISORDER
     Dosage: 2.5 MG, DAILY (1/D)
     Dates: end: 20100919
  3. VASTAREL [Concomitant]
     Dosage: 35 MG, 2/D
     Route: 048
     Dates: start: 20100916, end: 20100919
  4. TAMSULOSIN HCL [Concomitant]
     Indication: PROSTATIC ADENOMA
     Dosage: 0.4 MG, DAILY (1/D)
     Route: 048
     Dates: end: 20100919
  5. TANGANIL [Concomitant]
     Dosage: 500 MG, UNK
     Route: 048
     Dates: end: 20100919

REACTIONS (8)
  - COMA [None]
  - HYPOGLYCAEMIA [None]
  - HYPOTHERMIA [None]
  - LEUKOPENIA [None]
  - LYMPHOPENIA [None]
  - PANCREATITIS [None]
  - RHABDOMYOLYSIS [None]
  - THROMBOCYTOPENIA [None]
